FAERS Safety Report 15017764 (Version 4)
Quarter: 2018Q3

REPORT INFORMATION
  Report Type: Report from Study
  Country: CA (occurrence: CA)
  Receive Date: 20180615
  Receipt Date: 20180921
  Transmission Date: 20181010
  Serious: Yes (Death, Hospitalization, Other)
  Sender: FDA-Public Use
  Company Number: CA-BRISTOL-MYERS SQUIBB COMPANY-BMS-2017-047671

PATIENT
  Age: 81 Year
  Sex: Female

DRUGS (1)
  1. ABATACEPT [Suspect]
     Active Substance: ABATACEPT
     Indication: RHEUMATOID ARTHRITIS
     Dosage: 750 MG, Q4WK
     Route: 042
     Dates: start: 20151201

REACTIONS (10)
  - Bursitis [Unknown]
  - Spinal fracture [Unknown]
  - Fall [Unknown]
  - Blood pressure increased [Unknown]
  - Pain in extremity [Unknown]
  - Death [Fatal]
  - Immobilisation prolonged [Unknown]
  - Erythema [Recovered/Resolved]
  - Urinary tract infection [Unknown]
  - Arthropathy [Unknown]

NARRATIVE: CASE EVENT DATE: 20170525
